FAERS Safety Report 5717121-3 (Version None)
Quarter: 2008Q2

REPORT INFORMATION
  Report Type: 
  Country: None (occurrence: None)
  Receive Date: 20080424
  Receipt Date: 20080416
  Transmission Date: 20081010
  Serious: Yes (Hospitalization)
  Sender: FDA-Public Use
  Company Number: BR-PFIZER INC-2008032439

PATIENT
  Sex: Male
  Weight: 64 kg

DRUGS (8)
  1. MARAVIROC [Suspect]
     Indication: HIV INFECTION
     Route: 048
     Dates: start: 20080225, end: 20080409
  2. MEGESTROL ACETATE [Concomitant]
     Route: 048
     Dates: start: 20070828, end: 20080409
  3. AMPHOTERICIN B [Concomitant]
  4. TENOFOVIR DISOPROXIL FUMARATE [Concomitant]
     Route: 048
     Dates: start: 20071003, end: 20080409
  5. LAMIVUDINE [Concomitant]
     Route: 048
     Dates: start: 20071003, end: 20080409
  6. EFAVIRENZ [Concomitant]
     Route: 048
     Dates: start: 20071003, end: 20080409
  7. FOSAMPRENAVIR [Concomitant]
     Route: 048
     Dates: start: 20071003, end: 20080409
  8. RITONAVIR [Concomitant]
     Route: 048
     Dates: start: 20071003, end: 20080409

REACTIONS (1)
  - HISTOPLASMOSIS [None]
